FAERS Safety Report 20865631 (Version 2)
Quarter: 2022Q2

REPORT INFORMATION
  Report Type: Report from Study
  Country: CA (occurrence: None)
  Receive Date: 20220524
  Receipt Date: 20220527
  Transmission Date: 20220720
  Serious: Yes (Hospitalization)
  Sender: FDA-Public Use
  Company Number: CA-Eisai Medical Research-EC-2021-105300

PATIENT
  Age: 55 Year
  Sex: Male
  Weight: 105 kg

DRUGS (10)
  1. LENVATINIB [Suspect]
     Active Substance: LENVATINIB
     Indication: Colorectal cancer
     Route: 048
     Dates: start: 20211213, end: 20211221
  2. PEMBROLIZUMAB [Suspect]
     Active Substance: PEMBROLIZUMAB
     Indication: Colorectal cancer
     Route: 041
     Dates: start: 20211213, end: 20211213
  3. FAVEZELIMAB [Suspect]
     Active Substance: FAVEZELIMAB
     Indication: Colorectal cancer
     Route: 041
     Dates: start: 20211213, end: 20211213
  4. GRAVOL [Concomitant]
     Active Substance: DIMENHYDRINATE
     Dates: start: 202106
  5. CANDESARTAN [Concomitant]
     Active Substance: CANDESARTAN
     Dates: start: 202106
  6. TYLENOL [Concomitant]
     Active Substance: ACETAMINOPHEN
     Dates: start: 202106
  7. HYDROMORPHONE [Concomitant]
     Active Substance: HYDROMORPHONE
     Dates: start: 20211210
  8. ENOXAPARIN SODIUM [Concomitant]
     Active Substance: ENOXAPARIN SODIUM
     Dates: start: 202012
  9. DEXAMETHASONE [Concomitant]
     Active Substance: DEXAMETHASONE
     Dates: start: 202111, end: 20211129
  10. AMOXICILLIN [Concomitant]
     Active Substance: AMOXICILLIN
     Dates: start: 20211203, end: 20211210

REACTIONS (1)
  - Tumour associated fever [Recovered/Resolved]

NARRATIVE: CASE EVENT DATE: 20211213
